FAERS Safety Report 9486203 (Version 1)
Quarter: 2013Q3

REPORT INFORMATION
  Report Type: Spontaneous
  Country: NO (occurrence: NO)
  Receive Date: 20130829
  Receipt Date: 20130829
  Transmission Date: 20140515
  Serious: Yes (Other)
  Sender: FDA-Public Use
  Company Number: NO-PFIZER INC-2013248069

PATIENT
  Age: 41 Year
  Sex: Female

DRUGS (1)
  1. SOMAC [Suspect]
     Indication: ULCER
     Dosage: 40 MG, UNK
     Route: 048

REACTIONS (8)
  - Musculoskeletal discomfort [Unknown]
  - Chest discomfort [Unknown]
  - Embolism [Unknown]
  - Chest pain [Unknown]
  - Musculoskeletal pain [Unknown]
  - Alanine aminotransferase increased [Unknown]
  - Aspartate aminotransferase increased [Unknown]
  - Asthenia [Unknown]
